FAERS Safety Report 14557264 (Version 1)
Quarter: 2018Q1

REPORT INFORMATION
  Report Type: Spontaneous
  Country: US (occurrence: US)
  Receive Date: 20180220
  Receipt Date: 20180220
  Transmission Date: 20180509
  Serious: Yes (Other)
  Sender: FDA-Public Use
  Company Number: None

PATIENT
  Age: 69 Year
  Sex: Female
  Weight: 61.24 kg

DRUGS (1)
  1. CLOMIPRAMINE 25MG [Suspect]
     Active Substance: CLOMIPRAMINE
     Indication: OBSESSIVE-COMPULSIVE DISORDER
     Route: 048
     Dates: start: 20150511, end: 20150714

REACTIONS (2)
  - Condition aggravated [None]
  - Treatment failure [None]

NARRATIVE: CASE EVENT DATE: 20150707
